FAERS Safety Report 5616376-3 (Version None)
Quarter: 2008Q1

REPORT INFORMATION
  Report Type: 
  Country: None (occurrence: None)
  Receive Date: 20080205
  Receipt Date: 20080205
  Transmission Date: 20080703
  Serious: No
  Sender: FDA-Public Use
  Company Number: None

PATIENT
  Sex: Female
  Weight: 124.2856 kg

DRUGS (1)
  1. RAMIPRIL [Suspect]
     Indication: HYPERTENSION
     Dosage: 10 MG ONE DAILY PO
     Route: 048
     Dates: start: 20080124, end: 20080126

REACTIONS (2)
  - DIZZINESS [None]
  - NAUSEA [None]
